FAERS Safety Report 16070332 (Version 1)
Quarter: 2019Q1

REPORT INFORMATION
  Report Type: Report from Study
  Country: BR (occurrence: BR)
  Receive Date: 20190314
  Receipt Date: 20190314
  Transmission Date: 20190418
  Serious: Yes (Disabling)
  Sender: FDA-Public Use
  Company Number: BR-ROCHE-681578

PATIENT
  Age: 83 Year
  Sex: Female
  Weight: 53 kg

DRUGS (6)
  1. TRASTUZUMAB. [Suspect]
     Active Substance: TRASTUZUMAB
     Indication: HER-2 POSITIVE BREAST CANCER
     Dosage: LOADING DOSE AS PER PROTOCOL.
     Route: 042
  2. PLACEBO [Suspect]
     Active Substance: UNSPECIFIED INGREDIENT
     Dosage: FREQUENCY REPORTED AS 21/21 DAYS; LAST DOSE PRIOR TO SAE: 12 NOV 2009; PERMANENTLY DISCONTINUED
     Route: 042
     Dates: start: 20090112, end: 20091215
  3. HYDROCHLOROTHIAZIDE. [Concomitant]
     Active Substance: HYDROCHLOROTHIAZIDE
     Route: 065
  4. DOCETAXEL. [Suspect]
     Active Substance: DOCETAXEL
     Indication: HER-2 POSITIVE BREAST CANCER
     Dosage: LAST DOSE PRIOR TO SAE: 12 NOV 2009. FREQUENCY: 21/21 DAYS
     Route: 042
     Dates: start: 20081223, end: 20091215
  5. PLACEBO [Suspect]
     Active Substance: UNSPECIFIED INGREDIENT
     Indication: HER-2 POSITIVE BREAST CANCER
     Dosage: CYCLE 1.  LOADING DOSE AS PER PROTOCOL. DATE OF LAST DOSE PRIOR TO SAE: 12 NOV 2009
     Route: 042
     Dates: start: 20081222
  6. TRASTUZUMAB. [Suspect]
     Active Substance: TRASTUZUMAB
     Dosage: FREQUENCY REPORTED AS 21/21 DAYS; LAST DOSE PRIOR TO SAE: 12 NOV 2009; PERMANENTLY DISCONTINUED
     Route: 042
     Dates: start: 20090113, end: 20091215

REACTIONS (1)
  - Left ventricular dysfunction [Recovering/Resolving]

NARRATIVE: CASE EVENT DATE: 20091203
